FAERS Safety Report 18582500 (Version 1)
Quarter: 2020Q4

REPORT INFORMATION
  Report Type: Spontaneous
  Country: HU (occurrence: HU)
  Receive Date: 20201205
  Receipt Date: 20201205
  Transmission Date: 20210114
  Serious: Yes (Other)
  Sender: FDA-Public Use
  Company Number: HU-ROCHE-2723998

PATIENT
  Age: 80 Year
  Sex: Male

DRUGS (1)
  1. ATEZOLIZUMAB. [Suspect]
     Active Substance: ATEZOLIZUMAB
     Indication: BLADDER ADENOCARCINOMA STAGE UNSPECIFIED
     Route: 041
     Dates: start: 2018

REACTIONS (5)
  - Ataxia [Unknown]
  - Cognitive disorder [Unknown]
  - Somnolence [Unknown]
  - Disorientation [Unknown]
  - Gait inability [Unknown]

NARRATIVE: CASE EVENT DATE: 201811
